FAERS Safety Report 7846829-9 (Version None)
Quarter: 2011Q4

REPORT INFORMATION
  Report Type: 
  Country: None (occurrence: None)
  Receive Date: 20111025
  Receipt Date: 20111024
  Transmission Date: 20120403
  Serious: Yes (Other)
  Sender: FDA-Public Use
  Company Number: PHEH2011US03383

PATIENT

DRUGS (3)
  1. RECLAST [Suspect]
     Indication: OSTEOPOROSIS
     Dosage: UNK UKN, UNK
     Route: 042
     Dates: start: 20110420
  2. IBUPROFEN (ADVIL) [Concomitant]
     Dosage: UNK UKN, UNK
  3. TYLENOL-500 [Concomitant]
     Dosage: UNK UKN, UNK

REACTIONS (2)
  - ABSCESS ORAL [None]
  - FACIAL PAIN [None]
